APPROVED DRUG PRODUCT: METFORMIN HYDROCHLORIDE
Active Ingredient: METFORMIN HYDROCHLORIDE
Strength: 500MG
Dosage Form/Route: TABLET, EXTENDED RELEASE;ORAL
Application: A076249 | Product #001
Applicant: IMPAX LABORATORIES INC
Approved: Jul 30, 2004 | RLD: No | RS: No | Type: DISCN